FAERS Safety Report 18564921 (Version 16)
Quarter: 2021Q3

REPORT INFORMATION
  Report Type: Report from Study
  Country: PL (occurrence: PL)
  Receive Date: 20201201
  Receipt Date: 20210701
  Transmission Date: 20211014
  Serious: Yes (Life-Threatening, Hospitalization)
  Sender: FDA-Public Use
  Company Number: PL-ROCHE-2723275

PATIENT
  Age: 51 Year
  Sex: Male
  Weight: 70 kg

DRUGS (145)
  1. PLACEBO [Suspect]
     Active Substance: UNSPECIFIED INGREDIENT
     Dosage: BASELINE (WEEK 24)
     Route: 042
     Dates: start: 20130108, end: 20130108
  2. PLACEBO [Suspect]
     Active Substance: UNSPECIFIED INGREDIENT
     Dosage: BASELINE (WEEK 48)
     Route: 042
     Dates: start: 20130624, end: 20130624
  3. PLACEBO [Suspect]
     Active Substance: UNSPECIFIED INGREDIENT
     Dosage: BASELINE (WEEK 72)
     Route: 042
     Dates: start: 20131209, end: 20131209
  4. OCRELIZUMAB. [Suspect]
     Active Substance: OCRELIZUMAB
     Dosage: WEEK 48
     Route: 042
     Dates: start: 20150519, end: 20150519
  5. OCRELIZUMAB. [Suspect]
     Active Substance: OCRELIZUMAB
     Dosage: WEEK 192
     Route: 042
     Dates: start: 20180212, end: 20180212
  6. OCRELIZUMAB. [Suspect]
     Active Substance: OCRELIZUMAB
     Dosage: WEEK 288
     Route: 042
     Dates: start: 20191217, end: 20191217
  7. AMERTIL [Concomitant]
     Active Substance: CETIRIZINE HYDROCHLORIDE
     Dosage: OLE?WEEK 0
     Dates: start: 20140613
  8. AMERTIL [Concomitant]
     Active Substance: CETIRIZINE HYDROCHLORIDE
     Dosage: OLE?WEEK 192
     Dates: start: 20180212
  9. AMERTIL [Concomitant]
     Active Substance: CETIRIZINE HYDROCHLORIDE
     Dosage: OLE?WEEK 240
     Dates: start: 20190123
  10. AMERTIL [Concomitant]
     Active Substance: CETIRIZINE HYDROCHLORIDE
     Dosage: OLE?WEEK 288
     Dates: start: 20191217
  11. METHYLPREDNISOLONE. [Concomitant]
     Active Substance: METHYLPREDNISOLONE
     Dosage: OLE?WEEK 2
     Dates: start: 20140625, end: 20140625
  12. METHYLPREDNISOLONE. [Concomitant]
     Active Substance: METHYLPREDNISOLONE
     Dosage: OLE?WEEK 144
     Dates: start: 20170315, end: 20170315
  13. GENTAMYCIN [Concomitant]
     Active Substance: GENTAMICIN
     Dates: start: 20201130, end: 20201211
  14. METOCLOPRAMIDUM [Concomitant]
  15. TAZOCIN [Concomitant]
     Active Substance: PIPERACILLIN SODIUM\TAZOBACTAM SODIUM
     Dates: start: 20210107, end: 20210117
  16. MEROPENEM. [Concomitant]
     Active Substance: MEROPENEM
     Dates: start: 20210118, end: 20210131
  17. LEVALOX [Concomitant]
     Dates: start: 20210119, end: 20210226
  18. VANCOMYCIN [Concomitant]
     Active Substance: VANCOMYCIN
     Dates: start: 20210107, end: 20210119
  19. KETONAL (POLAND) [Concomitant]
     Dates: start: 20130108, end: 20130530
  20. LEVOXA [Concomitant]
     Active Substance: LEVOFLOXACIN
     Dates: start: 20210126, end: 20210204
  21. OCRELIZUMAB. [Suspect]
     Active Substance: OCRELIZUMAB
     Dosage: WEEK 264
     Route: 042
     Dates: start: 20190710, end: 20190710
  22. AMERTIL [Concomitant]
     Active Substance: CETIRIZINE HYDROCHLORIDE
     Dosage: WEEK 48
     Dates: start: 20130624
  23. AMERTIL [Concomitant]
     Active Substance: CETIRIZINE HYDROCHLORIDE
     Dosage: OLE?WEEK 48
     Dates: start: 20150519
  24. AMERTIL [Concomitant]
     Active Substance: CETIRIZINE HYDROCHLORIDE
     Dosage: OLE?WEEK 72
     Dates: start: 20151102
  25. AMERTIL [Concomitant]
     Active Substance: CETIRIZINE HYDROCHLORIDE
     Dosage: OLE?WEEK 120
     Dates: start: 20160927
  26. PARACETAMOL [Concomitant]
     Active Substance: ACETAMINOPHEN
     Dosage: OLE?WEEK 0
     Dates: start: 20140613
  27. PARACETAMOL [Concomitant]
     Active Substance: ACETAMINOPHEN
     Dosage: OLE?WEEK 24
     Dates: start: 20141126
  28. PARACETAMOL [Concomitant]
     Active Substance: ACETAMINOPHEN
     Dates: start: 20201215
  29. METHYLPREDNISOLONE. [Concomitant]
     Active Substance: METHYLPREDNISOLONE
     Dosage: OLE?WEEK 0
     Dates: start: 20140613, end: 20140613
  30. METHYLPREDNISOLONE. [Concomitant]
     Active Substance: METHYLPREDNISOLONE
     Dosage: WEEK 48
     Dates: start: 20130624, end: 20130624
  31. METHYLPREDNISOLONE. [Concomitant]
     Active Substance: METHYLPREDNISOLONE
     Dosage: OLE?WEEK 72
     Dates: start: 20151102, end: 20151102
  32. METHYLPREDNISOLONE. [Concomitant]
     Active Substance: METHYLPREDNISOLONE
     Dosage: OLE?WEEK 192
     Dates: start: 20180212, end: 20180212
  33. METHYLPREDNISOLONE. [Concomitant]
     Active Substance: METHYLPREDNISOLONE
     Dosage: OLE?WEEK 216
     Dates: start: 20180808, end: 20180808
  34. EUTHYROX N [Concomitant]
     Active Substance: LEVOTHYROXINE SODIUM
     Dosage: DOSE? 125.00 MICROGRAM
     Dates: start: 20131105, end: 20140911
  35. METRONIDAZOLE. [Concomitant]
     Active Substance: METRONIDAZOLE
     Dates: start: 202011, end: 202011
  36. SYNTARPEN [Concomitant]
     Active Substance: CLOXACILLIN SODIUM
  37. BIOTRAKSON [Concomitant]
     Active Substance: CEFTRIAXONE SODIUM
  38. BERODUAL [Concomitant]
     Active Substance: FENOTEROL HYDROBROMIDE\IPRATROPIUM BROMIDE
     Dates: start: 20210113, end: 20210127
  39. LEVOXA [Concomitant]
     Active Substance: LEVOFLOXACIN
     Dates: start: 202009, end: 202009
  40. INTERFERON BETA?1A [Suspect]
     Active Substance: INTERFERON BETA-1A
     Indication: RELAPSING-REMITTING MULTIPLE SCLEROSIS
     Route: 058
     Dates: start: 20120723
  41. OCRELIZUMAB. [Suspect]
     Active Substance: OCRELIZUMAB
     Dosage: WEEK 144
     Route: 042
     Dates: start: 20170315, end: 20170315
  42. OCRELIZUMAB. [Suspect]
     Active Substance: OCRELIZUMAB
     Dosage: OLE?WEEK 312
     Route: 042
     Dates: start: 20200605, end: 20200605
  43. AMERTIL [Concomitant]
     Active Substance: CETIRIZINE HYDROCHLORIDE
     Dosage: BASELINE (WEEK 1)
     Dates: start: 20120723
  44. AMERTIL [Concomitant]
     Active Substance: CETIRIZINE HYDROCHLORIDE
     Dosage: WEEK 72
     Dates: start: 20131209
  45. PARACETAMOL [Concomitant]
     Active Substance: ACETAMINOPHEN
     Dosage: WEEK 72
     Dates: start: 20131209
  46. PARACETAMOL [Concomitant]
     Active Substance: ACETAMINOPHEN
     Dosage: OLE?WEEK 72
     Dates: start: 20151102
  47. PARACETAMOL [Concomitant]
     Active Substance: ACETAMINOPHEN
     Dosage: OLE?WEEK 96
     Dates: start: 20160415
  48. PARACETAMOL [Concomitant]
     Active Substance: ACETAMINOPHEN
     Dosage: OLE?WEEK 264
     Dates: start: 20190710
  49. METHYLPREDNISOLONE. [Concomitant]
     Active Substance: METHYLPREDNISOLONE
     Dosage: OLE?WEEK 24
     Dates: start: 20141126, end: 20141126
  50. METHYLPREDNISOLONE. [Concomitant]
     Active Substance: METHYLPREDNISOLONE
     Dosage: OLE?WEEK 0
     Dates: start: 20140613, end: 20140613
  51. METHYLPREDNISOLONE. [Concomitant]
     Active Substance: METHYLPREDNISOLONE
     Dosage: OLE?WEEK 96
     Dates: start: 20160415, end: 20160415
  52. METHYLPREDNISOLONE. [Concomitant]
     Active Substance: METHYLPREDNISOLONE
     Dosage: OLE?WEEK 240
     Dates: start: 20190123, end: 20190123
  53. EUTHYROX N [Concomitant]
     Active Substance: LEVOTHYROXINE SODIUM
     Dosage: DOSE? 137.00 MICROGRAM
     Dates: start: 201603, end: 20171106
  54. EUTHYROX N [Concomitant]
     Active Substance: LEVOTHYROXINE SODIUM
     Dosage: DOSE? 75.00 MICROGRAM
     Dates: start: 20120825, end: 20120907
  55. EUTHYROX N [Concomitant]
     Active Substance: LEVOTHYROXINE SODIUM
     Dosage: DOSE? 150.00 MICROGRAM
     Dates: start: 20131011, end: 20131016
  56. EUTHYROX N [Concomitant]
     Active Substance: LEVOTHYROXINE SODIUM
     Dosage: DOSE? 125.00 MICROGRAM
     Dates: start: 20171107
  57. CIPRINOL [Concomitant]
     Active Substance: CIPROFLOXACIN
     Dates: start: 20130226, end: 20130302
  58. OSPEN [Concomitant]
     Active Substance: PENICILLIN V
     Dates: start: 202010, end: 202010
  59. CLEXANE [Concomitant]
     Active Substance: ENOXAPARIN SODIUM
     Dates: start: 20201215, end: 20210211
  60. METOPROLOL TARTRATE. [Concomitant]
     Active Substance: METOPROLOL TARTRATE
     Dates: start: 20210116, end: 20210116
  61. ENCORTON [Concomitant]
     Active Substance: PREDNISONE
     Dates: start: 20210421, end: 20210520
  62. LETROX [Concomitant]
     Active Substance: LEVOTHYROXINE SODIUM
  63. PERFALGAN [Concomitant]
     Active Substance: ACETAMINOPHEN
  64. LEVOXA [Concomitant]
     Active Substance: LEVOFLOXACIN
     Dates: start: 202010, end: 202010
  65. PLACEBO [Suspect]
     Active Substance: UNSPECIFIED INGREDIENT
     Indication: RELAPSING-REMITTING MULTIPLE SCLEROSIS
     Dosage: BASELINE (WEEK 1)?INFUSIONS ON DAYS 1 AND 15 FOR THE FIRST DOSE AND AS A SINGLE INFUSION AND FOR ALL
     Route: 042
     Dates: start: 20120723, end: 20120723
  66. AMERTIL [Concomitant]
     Active Substance: CETIRIZINE HYDROCHLORIDE
     Dosage: OLE?WEEK 216
     Dates: start: 20180808
  67. PARACETAMOL [Concomitant]
     Active Substance: ACETAMINOPHEN
     Dosage: BASELINE (WEEK 1)
     Dates: start: 20120723
  68. PARACETAMOL [Concomitant]
     Active Substance: ACETAMINOPHEN
     Dates: start: 20201219, end: 20201220
  69. PARACETAMOL [Concomitant]
     Active Substance: ACETAMINOPHEN
     Dates: start: 20201215, end: 20210121
  70. METHYLPREDNISOLONE. [Concomitant]
     Active Substance: METHYLPREDNISOLONE
     Dosage: WEEK 2
     Dates: start: 20120806, end: 20120806
  71. METHYLPREDNISOLONE. [Concomitant]
     Active Substance: METHYLPREDNISOLONE
     Dosage: WEEK 24
     Dates: start: 20130108, end: 20130108
  72. METHYLPREDNISOLONE. [Concomitant]
     Active Substance: METHYLPREDNISOLONE
     Dosage: WEEK 72
     Dates: start: 20131209, end: 20131209
  73. METHYLPREDNISOLONE. [Concomitant]
     Active Substance: METHYLPREDNISOLONE
     Dosage: OLE?WEEK 288
     Dates: start: 20191217, end: 20191217
  74. EUTHYROX N [Concomitant]
     Active Substance: LEVOTHYROXINE SODIUM
     Dosage: DOSE? 50.00
     Dates: start: 20120811, end: 20120824
  75. EUTHYROX N [Concomitant]
     Active Substance: LEVOTHYROXINE SODIUM
     Dosage: DOSE? 12.50 MICROGRAM
     Dates: start: 20120723, end: 20120803
  76. CLEXANE [Concomitant]
     Active Substance: ENOXAPARIN SODIUM
     Dates: start: 20201126, end: 20201224
  77. CLEXANE [Concomitant]
     Active Substance: ENOXAPARIN SODIUM
  78. LIOTON [Concomitant]
     Dosage: 1000 GEL
  79. LAKCID [Concomitant]
     Active Substance: LACTOBACILLUS ACIDOPHILUS
     Dates: start: 20201127, end: 20201209
  80. PLACEBO [Suspect]
     Active Substance: UNSPECIFIED INGREDIENT
     Dosage: BASELINE (WEEK 2)
     Route: 042
     Dates: start: 20120806, end: 20120806
  81. OCRELIZUMAB. [Suspect]
     Active Substance: OCRELIZUMAB
     Dosage: WEEK 2
     Route: 042
     Dates: start: 20140625, end: 20140625
  82. AMERTIL [Concomitant]
     Active Substance: CETIRIZINE HYDROCHLORIDE
     Dosage: OLE?WEEK 96
     Dates: start: 20160415
  83. AMERTIL [Concomitant]
     Active Substance: CETIRIZINE HYDROCHLORIDE
     Dosage: OLE?WEEK 144
     Dates: start: 20170315
  84. PARACETAMOL [Concomitant]
     Active Substance: ACETAMINOPHEN
     Dosage: OLE?WEEK 48
     Dates: start: 20150519
  85. PARACETAMOL [Concomitant]
     Active Substance: ACETAMINOPHEN
     Dosage: OLE?WEEK 120
     Dates: start: 20160927
  86. PARACETAMOL [Concomitant]
     Active Substance: ACETAMINOPHEN
     Dosage: OLE?WEEK 192
     Dates: start: 20180212
  87. PARACETAMOL [Concomitant]
     Active Substance: ACETAMINOPHEN
     Dosage: OLE?WEEK 216
     Dates: start: 20180808
  88. METHYLPREDNISOLONE. [Concomitant]
     Active Substance: METHYLPREDNISOLONE
     Dosage: OLE?WEEK 264
     Dates: start: 20190710, end: 20190710
  89. EUTHYROX N [Concomitant]
     Active Substance: LEVOTHYROXINE SODIUM
     Indication: AUTOIMMUNE THYROIDITIS
     Dosage: DOSE? 175.00 MICROGRAM
     Dates: start: 20130210, end: 20131010
  90. EUTHYROX N [Concomitant]
     Active Substance: LEVOTHYROXINE SODIUM
     Dosage: DOSE? 150.00 MICROGRAM
     Dates: start: 20130111, end: 20130209
  91. EUTHYROX N [Concomitant]
     Active Substance: LEVOTHYROXINE SODIUM
     Dosage: DOSE? 150.00 MICROGRAM
     Dates: start: 20140912, end: 201603
  92. CEFTRIAXONE. [Concomitant]
     Active Substance: CEFTRIAXONE
     Dates: start: 20201211, end: 20201211
  93. ENCORTON [Concomitant]
     Active Substance: PREDNISONE
     Dates: start: 20210317, end: 20210420
  94. ENCORTON [Concomitant]
     Active Substance: PREDNISONE
     Dates: start: 20210429
  95. LEVOXA [Concomitant]
     Active Substance: LEVOFLOXACIN
     Dates: start: 20201215
  96. ESTAZOLAM. [Concomitant]
     Active Substance: ESTAZOLAM
     Dates: start: 20201203, end: 20210211
  97. IPP (POLAND) [Concomitant]
     Dates: start: 20201219
  98. OCRELIZUMAB. [Suspect]
     Active Substance: OCRELIZUMAB
     Dosage: WEEK 240
     Route: 042
     Dates: start: 20190123, end: 20190123
  99. AMERTIL [Concomitant]
     Active Substance: CETIRIZINE HYDROCHLORIDE
     Dosage: OLE?WEEK 2
     Dates: start: 20140625
  100. AMERTIL [Concomitant]
     Active Substance: CETIRIZINE HYDROCHLORIDE
     Dosage: OLE?WEEK 168
     Dates: start: 20170905
  101. AMERTIL [Concomitant]
     Active Substance: CETIRIZINE HYDROCHLORIDE
     Dosage: OLE?WEEK 264
     Dates: start: 20190710
  102. PARACETAMOL [Concomitant]
     Active Substance: ACETAMINOPHEN
     Dosage: OLE?WEEK 168
     Dates: start: 20170905
  103. PARACETAMOL [Concomitant]
     Active Substance: ACETAMINOPHEN
     Dosage: OLE?WEEK 240
     Dates: start: 20190123
  104. EUTHYROX N [Concomitant]
     Active Substance: LEVOTHYROXINE SODIUM
     Dosage: DOSE? 100.00 MICROGRAM
     Dates: start: 20120908, end: 20121109
  105. OPTILYTE [Concomitant]
     Active Substance: CALCIUM CHLORIDE\MAGNESIUM CHLORIDE\POTASSIUM CHLORIDE\SODIUM ACETATE\SODIUM CHLORIDE\SODIUM CITRATE
     Dates: start: 20210126, end: 20210127
  106. ENCORTON [Concomitant]
     Active Substance: PREDNISONE
     Dates: start: 20210204, end: 20210228
  107. ENCORTON [Concomitant]
     Active Substance: PREDNISONE
     Dates: start: 20210309, end: 20210316
  108. FLUCONAZOLE. [Concomitant]
     Active Substance: FLUCONAZOLE
     Dates: start: 20201218, end: 20210113
  109. KETONAL (POLAND) [Concomitant]
     Indication: BACK PAIN
     Dates: start: 20201127, end: 20210124
  110. OCRELIZUMAB. [Suspect]
     Active Substance: OCRELIZUMAB
     Indication: RELAPSING-REMITTING MULTIPLE SCLEROSIS
     Dosage: WEEK 0?300 MG INFUSIONS ON DAYS 1 AND 15 FOR THE FIRST DOSE AND AS A SINGLE INFUSION OF 600 MG FOR A
     Route: 042
     Dates: start: 20140613
  111. OCRELIZUMAB. [Suspect]
     Active Substance: OCRELIZUMAB
     Dosage: WEEK 72
     Route: 042
     Dates: start: 20151102, end: 20151102
  112. OCRELIZUMAB. [Suspect]
     Active Substance: OCRELIZUMAB
     Dosage: WEEK 96
     Route: 042
     Dates: start: 20160415, end: 20160415
  113. OCRELIZUMAB. [Suspect]
     Active Substance: OCRELIZUMAB
     Dosage: WEEK 120
     Route: 042
     Dates: start: 20160927, end: 20160927
  114. OCRELIZUMAB. [Suspect]
     Active Substance: OCRELIZUMAB
     Dosage: WEEK 216
     Route: 042
     Dates: start: 20180808, end: 20180808
  115. PARACETAMOL [Concomitant]
     Active Substance: ACETAMINOPHEN
     Dosage: WEEK 48
     Dates: start: 20130624
  116. PARACETAMOL [Concomitant]
     Active Substance: ACETAMINOPHEN
     Dosage: OLE?WEEK 2
     Dates: start: 20140625
  117. PARACETAMOL [Concomitant]
     Active Substance: ACETAMINOPHEN
     Dates: start: 20201126, end: 20201224
  118. METHYLPREDNISOLONE. [Concomitant]
     Active Substance: METHYLPREDNISOLONE
     Dosage: OLE?WEEK 168
     Dates: start: 20170905, end: 20170905
  119. METHYLPREDNISOLONE. [Concomitant]
     Active Substance: METHYLPREDNISOLONE
     Dosage: OLE?WEEK 312
     Dates: start: 20200605, end: 20200605
  120. EUTHYROX N [Concomitant]
     Active Substance: LEVOTHYROXINE SODIUM
     Dosage: DOSE? 25.00 MICROGRAM
     Dates: start: 20120804, end: 20120810
  121. EUTHYROX N [Concomitant]
     Active Substance: LEVOTHYROXINE SODIUM
     Dosage: DOSE? 150.00 MICROGRAM
     Dates: start: 20130210, end: 20131010
  122. EUTHYROX N [Concomitant]
     Active Substance: LEVOTHYROXINE SODIUM
     Dosage: DOSE? 100.00 MICROGRAM
     Dates: start: 20131017, end: 20131104
  123. CIPRINOL [Concomitant]
     Active Substance: CIPROFLOXACIN
     Indication: URINARY TRACT INFECTION
     Dates: start: 20121204, end: 20121212
  124. ENTEROL (POLAND) [Concomitant]
     Dosage: 250
     Dates: start: 20210113
  125. AMERTIL [Concomitant]
     Active Substance: CETIRIZINE HYDROCHLORIDE
     Dates: start: 20210126, end: 20210126
  126. CONTROLOC [Concomitant]
     Active Substance: PANTOPRAZOLE SODIUM
     Dates: start: 20201218, end: 20201218
  127. INTERFERON BETA?1A [Suspect]
     Active Substance: INTERFERON BETA-1A
     Route: 058
     Dates: start: 20140526, end: 20140611
  128. OCRELIZUMAB. [Suspect]
     Active Substance: OCRELIZUMAB
     Dosage: WEEK 24
     Route: 042
     Dates: start: 20141126, end: 20141126
  129. OCRELIZUMAB. [Suspect]
     Active Substance: OCRELIZUMAB
     Dosage: WEEK 168
     Route: 042
     Dates: start: 20170905, end: 20170905
  130. AMERTIL [Concomitant]
     Active Substance: CETIRIZINE HYDROCHLORIDE
     Dosage: WEEK 2
     Dates: start: 20120806
  131. AMERTIL [Concomitant]
     Active Substance: CETIRIZINE HYDROCHLORIDE
     Dosage: WEEK 24
     Dates: start: 20130108
  132. AMERTIL [Concomitant]
     Active Substance: CETIRIZINE HYDROCHLORIDE
     Dosage: OLE?WEEK 24
     Dates: start: 20141126
  133. AMERTIL [Concomitant]
     Active Substance: CETIRIZINE HYDROCHLORIDE
     Dosage: OLE?WEEK 312
     Dates: start: 20200605
  134. PARACETAMOL [Concomitant]
     Active Substance: ACETAMINOPHEN
     Dosage: WEEK 2
     Dates: start: 20120806
  135. PARACETAMOL [Concomitant]
     Active Substance: ACETAMINOPHEN
     Dosage: WEEK 24
     Dates: start: 20130108
  136. PARACETAMOL [Concomitant]
     Active Substance: ACETAMINOPHEN
     Dosage: OLE?WEEK 144
     Dates: start: 20170315
  137. PARACETAMOL [Concomitant]
     Active Substance: ACETAMINOPHEN
     Dosage: OLE?WEEK 288
     Dates: start: 20191217
  138. METHYLPREDNISOLONE. [Concomitant]
     Active Substance: METHYLPREDNISOLONE
     Dosage: OLE?WEEK 0
     Dates: start: 20150519, end: 20150519
  139. METHYLPREDNISOLONE. [Concomitant]
     Active Substance: METHYLPREDNISOLONE
     Dosage: OLE?WEEK 120
     Dates: start: 20160927, end: 20160927
  140. EUTHYROX N [Concomitant]
     Active Substance: LEVOTHYROXINE SODIUM
     Dosage: DOSE? 112.00 MICROGRAM
     Dates: start: 20121110, end: 20130110
  141. CIPRINOL [Concomitant]
     Active Substance: CIPROFLOXACIN
     Dates: start: 202010, end: 202010
  142. SYNTARPEN [Concomitant]
     Active Substance: CLOXACILLIN SODIUM
     Dates: start: 20201130, end: 20210106
  143. AMPICILLIN [Concomitant]
     Active Substance: AMPICILLIN
     Dates: start: 20201130, end: 20201211
  144. ENCORTON [Concomitant]
     Active Substance: PREDNISONE
     Dates: start: 20210301, end: 20210308
  145. PARACETAMOL [Concomitant]
     Active Substance: ACETAMINOPHEN

REACTIONS (1)
  - Endocarditis [Recovered/Resolved]

NARRATIVE: CASE EVENT DATE: 20201125
